FAERS Safety Report 6856358-7 (Version None)
Quarter: 2010Q3

REPORT INFORMATION
  Report Type: 
  Country: None (occurrence: None)
  Receive Date: 20100719
  Receipt Date: 20100706
  Transmission Date: 20110219
  Serious: Yes (Hospitalization)
  Sender: FDA-Public Use
  Company Number: PHHY2010US43441

PATIENT
  Age: 66 Year
  Sex: Female
  Weight: 81.633 kg

DRUGS (12)
  1. RECLAST [Suspect]
     Indication: OSTEOPOROSIS
     Dosage: 5 MG
     Route: 042
     Dates: start: 20100506
  2. COUMADIN [Concomitant]
  3. DIGOXIN [Concomitant]
  4. APIRMOBETORE [Concomitant]
  5. TRPOSL [Concomitant]
  6. DIOVAN [Concomitant]
  7. ZOLOFT [Concomitant]
  8. SEROQUEL [Concomitant]
  9. REQUIP [Concomitant]
  10. SINGULAIR [Concomitant]
  11. LOWVERT [Concomitant]
  12. FLORENT [Concomitant]

REACTIONS (6)
  - BODY TEMPERATURE INCREASED [None]
  - DEPRESSED LEVEL OF CONSCIOUSNESS [None]
  - FATIGUE [None]
  - PAIN [None]
  - PNEUMONIA [None]
  - STUPOR [None]
